FAERS Safety Report 12712701 (Version 1)
Quarter: 2016Q3

REPORT INFORMATION
  Report Type: Spontaneous
  Country: PR (occurrence: PR)
  Receive Date: 20160902
  Receipt Date: 20160902
  Transmission Date: 20161109
  Serious: Yes (Hospitalization)
  Sender: FDA-Public Use
  Company Number: PR-BIOGEN-2016BI00284892

PATIENT
  Age: 49 Year
  Sex: Female

DRUGS (2)
  1. TECFIDERA [Suspect]
     Active Substance: DIMETHYL FUMARATE
     Indication: MULTIPLE SCLEROSIS
     Dosage: MAINTENANCE DOSE
     Route: 048
     Dates: start: 20160408, end: 20160822
  2. PREDNISONE. [Concomitant]
     Active Substance: PREDNISONE
     Indication: PRODUCT USED FOR UNKNOWN INDICATION
     Route: 065

REACTIONS (5)
  - Tongue discolouration [Unknown]
  - Drug ineffective [Unknown]
  - Migraine [Unknown]
  - Multiple sclerosis relapse [Unknown]
  - Chest pain [Unknown]

NARRATIVE: CASE EVENT DATE: 20160819
